FAERS Safety Report 8548441-5 (Version None)
Quarter: 2012Q2

REPORT INFORMATION
  Report Type: 
  Country: None (occurrence: None)
  Receive Date: 20120416
  Receipt Date: 20110405
  Transmission Date: 20120825
  Serious: Yes (Other)
  Sender: FDA-Public Use
  Company Number: PHHY2011US10416

PATIENT
  Age: 72 Year
  Sex: Male
  Weight: 88 kg

DRUGS (6)
  1. COQ10 (UBIDECARENONE) [Concomitant]
  2. DIOVAN [Suspect]
     Indication: HYPERTENSION
     Dosage: 1 DF, BID, ORAL
     Route: 048
  3. HYDRALAZINE HCL [Concomitant]
  4. MULTIVITAMIN [Concomitant]
  5. HYDROCHLOROTHIAZIDE [Concomitant]
  6. CLONIDINE [Concomitant]

REACTIONS (1)
  - BLOOD PRESSURE INCREASED [None]
